FAERS Safety Report 9149406 (Version 1)
Quarter: 2013Q1

REPORT INFORMATION
  Report Type: Spontaneous
  Country: US (occurrence: None)
  Receive Date: 20130301
  Receipt Date: 20130301
  Transmission Date: 20140127
  Serious: Yes (Life-Threatening, Hospitalization)
  Sender: FDA-Public Use
  Company Number: None

PATIENT
  Age: 73 Year
  Sex: Female
  Weight: 76.2 kg

DRUGS (1)
  1. FERRLECIT [Suspect]
     Indication: IRON DEFICIENCY ANAEMIA
     Dosage: 125 MG  ONCE  IV 041
     Route: 042
     Dates: start: 20130211

REACTIONS (4)
  - Vomiting [None]
  - Cold sweat [None]
  - Faecal incontinence [None]
  - Blood pressure decreased [None]
